FAERS Safety Report 5402041-4 (Version None)
Quarter: 2007Q3

REPORT INFORMATION
  Report Type: 
  Country: None (occurrence: None)
  Receive Date: 20070727
  Receipt Date: 20070718
  Transmission Date: 20080115
  Serious: Yes (Hospitalization)
  Sender: FDA-Public Use
  Company Number: 2007VX001885

PATIENT
  Sex: Male

DRUGS (1)
  1. EFUDEX [Suspect]
     Indication: ACTINIC KERATOSIS
     Dosage: TOP
     Route: 061

REACTIONS (2)
  - BACTERIAL INFECTION [None]
  - INTENTIONAL DRUG MISUSE [None]
